FAERS Safety Report 5992933-X (Version None)
Quarter: 2008Q4

REPORT INFORMATION
  Report Type: 
  Country: None (occurrence: None)
  Receive Date: 20081210
  Receipt Date: 20081210
  Transmission Date: 20090506
  Serious: Yes (Other)
  Sender: FDA-Public Use
  Company Number: None

PATIENT
  Sex: Male
  Weight: 11.3399 kg

DRUGS (2)
  1. LEVETIRACETAM [Suspect]
     Indication: CONVULSION
     Dosage: 250MG 1/2 AM + 1 HS PO
     Route: 048
     Dates: start: 20081114, end: 20081208
  2. LEVETIRACETAM [Suspect]
     Indication: CONVULSION
     Dosage: 500MG 2 TAB TWICE DAILY PO
     Route: 048
     Dates: start: 20081201, end: 20081208

REACTIONS (2)
  - CONVULSION [None]
  - THERAPEUTIC RESPONSE UNEXPECTED WITH DRUG SUBSTITUTION [None]
